FAERS Safety Report 4407628-3 (Version None)
Quarter: 2004Q3

REPORT INFORMATION
  Report Type: 
  Country: None (occurrence: None)
  Receive Date: 20040721
  Receipt Date: 20040707
  Transmission Date: 20050211
  Serious: Yes (Hospitalization)
  Sender: FDA-Public Use
  Company Number: US_0407104074

PATIENT
  Age: 63 Year
  Sex: Male

DRUGS (8)
  1. VANCOMYCIN [Suspect]
     Indication: ARTHRITIS INFECTIVE
  2. VANCOMYCIN [Suspect]
     Indication: IMPLANT SITE INFECTION
  3. RIFAMPICIN [Concomitant]
  4. DILTIAZEM [Concomitant]
  5. ATORVASTATIN CALCIUM [Concomitant]
  6. ACETAMINOPHEN [Concomitant]
  7. LISINOPRIL [Concomitant]
  8. TEMAZEPAM [Concomitant]

REACTIONS (14)
  - ANURIA [None]
  - CHILLS [None]
  - ERYTHEMA MULTIFORME [None]
  - EXANTHEM [None]
  - HYPOTENSION [None]
  - INFLAMMATION [None]
  - LEUKOCYTOSIS [None]
  - LEUKOPENIA [None]
  - NEUTROPHIL PERCENTAGE INCREASED [None]
  - SEPTIC SHOCK [None]
  - SKIN TEST POSITIVE [None]
  - STEVENS-JOHNSON SYNDROME [None]
  - TACHYCARDIA [None]
  - TOXIC SHOCK SYNDROME STAPHYLOCOCCAL [None]
